FAERS Safety Report 11820513 (Version 1)
Quarter: 2015Q4

REPORT INFORMATION
  Report Type: Spontaneous
  Country: US (occurrence: US)
  Receive Date: 20151210
  Receipt Date: 20151210
  Transmission Date: 20160305
  Serious: No
  Sender: FDA-Public Use
  Company Number: US-JNJFOC-20150704422

PATIENT
  Sex: Male

DRUGS (10)
  1. IMBRUVICA [Suspect]
     Active Substance: IBRUTINIB
     Indication: MANTLE CELL LYMPHOMA
     Route: 048
     Dates: start: 201504
  2. AZILECT [Concomitant]
     Active Substance: RASAGILINE MESYLATE
  3. CARBIDOPA W/ENTACAPONE W/LEVODOPA [Concomitant]
     Active Substance: CARBIDOPA\ENTACAPONE\LEVODOPA
  4. ROPINIROLE. [Concomitant]
     Active Substance: ROPINIROLE
  5. FUROSEMIDE. [Concomitant]
     Active Substance: FUROSEMIDE
  6. RIVASTIGMINE. [Concomitant]
     Active Substance: RIVASTIGMINE
  7. TAMSULOSIN [Concomitant]
     Active Substance: TAMSULOSIN
  8. ALLOPURINOL. [Concomitant]
     Active Substance: ALLOPURINOL
  9. OMEPRAZOLE. [Concomitant]
     Active Substance: OMEPRAZOLE
  10. FINASTERIDE. [Concomitant]
     Active Substance: FINASTERIDE

REACTIONS (2)
  - Skin discolouration [Unknown]
  - Rash [Unknown]

NARRATIVE: CASE EVENT DATE: 2015
